FAERS Safety Report 24463324 (Version 1)
Quarter: 2024Q4

REPORT INFORMATION
  Report Type: Report from Study
  Country: US (occurrence: US)
  Receive Date: 20241018
  Receipt Date: 20241018
  Transmission Date: 20250115
  Serious: No
  Sender: ROCHE
  Company Number: US-ROCHE-1880242

PATIENT
  Age: 60 Year
  Sex: Male

DRUGS (10)
  1. XOLAIR [Suspect]
     Active Substance: OMALIZUMAB
     Indication: Dermatitis atopic
     Dosage: MOST RECENT DOSE:29/DEC/2016, THERAPY: CONTINUING. INJECTION
     Route: 058
  2. XOLAIR [Suspect]
     Active Substance: OMALIZUMAB
     Indication: Atopic keratoconjunctivitis
     Dosage: 150 MG - 6 VIALS
     Route: 058
  3. XOLAIR [Suspect]
     Active Substance: OMALIZUMAB
     Indication: Dermatitis atopic
     Dosage: 150 MG- 4 VIALS
     Route: 058
  4. XOLAIR [Suspect]
     Active Substance: OMALIZUMAB
     Indication: Idiopathic urticaria
     Dosage: 75 MG- 2 VIALS
     Route: 058
  5. XOLAIR [Suspect]
     Active Substance: OMALIZUMAB
     Indication: Keratitis
     Route: 058
  6. EPIPEN [Concomitant]
     Active Substance: EPINEPHRINE
  7. SINGULAIR [Concomitant]
     Active Substance: MONTELUKAST SODIUM
  8. CYCLOSPORINE [Concomitant]
     Active Substance: CYCLOSPORINE
  9. DUREZOL [Concomitant]
     Active Substance: DIFLUPREDNATE
  10. LASTACAFT [Concomitant]
     Active Substance: ALCAFTADINE

REACTIONS (2)
  - Off label use [Unknown]
  - No adverse event [Unknown]
